FAERS Safety Report 8172958-9 (Version None)
Quarter: 2012Q1

REPORT INFORMATION
  Report Type: 
  Country: None (occurrence: None)
  Receive Date: 20120229
  Receipt Date: 20120217
  Transmission Date: 20120608
  Serious: Yes (Other)
  Sender: FDA-Public Use
  Company Number: US-BAYER-2012-013095

PATIENT
  Age: 35 Year
  Sex: Female

DRUGS (2)
  1. YASMIN [Suspect]
     Indication: ENDOMETRIOSIS
     Dosage: UNK
     Dates: start: 20060601, end: 20060801
  2. AMBIEN CR [Concomitant]
     Dosage: 6.25 MG, HS
     Route: 048
     Dates: start: 20060327

REACTIONS (2)
  - DEEP VEIN THROMBOSIS [None]
  - INJURY [None]
